FAERS Safety Report 23646566 (Version 1)
Quarter: 2024Q1

REPORT INFORMATION
  Report Type: Spontaneous
  Country: US (occurrence: US)
  Receive Date: 20240319
  Receipt Date: 20240319
  Transmission Date: 20240410
  Serious: No
  Sender: FDA-Public Use
  Company Number: US-BRISTOL-MYERS SQUIBB COMPANY-2024-041136

PATIENT
  Age: 90 Year
  Sex: Female

DRUGS (1)
  1. POMALYST [Suspect]
     Active Substance: POMALIDOMIDE
     Indication: Plasma cell myeloma
     Dosage: QD FOR 14 DAYS ON THEN 14 DAYS OFF
     Route: 048

REACTIONS (5)
  - Full blood count decreased [Unknown]
  - Asthenia [Unknown]
  - Constipation [Unknown]
  - Diarrhoea [Unknown]
  - Off label use [Unknown]
